FAERS Safety Report 18300846 (Version 1)
Quarter: 2020Q3

REPORT INFORMATION
  Report Type: Spontaneous
  Country: US (occurrence: US)
  Receive Date: 20200923
  Receipt Date: 20200923
  Transmission Date: 20201103
  Serious: Yes (Other)
  Sender: FDA-Public Use
  Company Number: None

PATIENT
  Age: 75 Year
  Sex: Female

DRUGS (9)
  1. TYMLOS [Suspect]
     Active Substance: ABALOPARATIDE
     Indication: OSTEOPOROSIS
     Route: 058
     Dates: start: 20200901
  2. AMLODIPINE [Concomitant]
     Active Substance: AMLODIPINE BESYLATE
  3. OMEPRAZOLE. [Concomitant]
     Active Substance: OMEPRAZOLE
  4. LATANOPROST. [Concomitant]
     Active Substance: LATANOPROST
  5. LISINOPRIL. [Concomitant]
     Active Substance: LISINOPRIL
  6. BRIMOIDINE [Concomitant]
  7. TIMOLOL. [Concomitant]
     Active Substance: TIMOLOL
  8. METOPROLOL. [Concomitant]
     Active Substance: METOPROLOL
  9. ZETIA [Concomitant]
     Active Substance: EZETIMIBE

REACTIONS (3)
  - Insomnia [None]
  - Feeling jittery [None]
  - Headache [None]

NARRATIVE: CASE EVENT DATE: 20200923
